FAERS Safety Report 7473980-8 (Version None)
Quarter: 2011Q2

REPORT INFORMATION
  Report Type: 
  Country: None (occurrence: None)
  Receive Date: 20110511
  Receipt Date: 20110509
  Transmission Date: 20111010
  Serious: Yes (Hospitalization, Other)
  Sender: FDA-Public Use
  Company Number: JP-PFIZER INC-2011082822

PATIENT
  Age: 78 Year
  Sex: Female
  Weight: 60 kg

DRUGS (14)
  1. LYRICA [Suspect]
     Indication: BACK PAIN
     Dosage: 75 MG, 1X/DAY
     Route: 048
     Dates: start: 20110405, end: 20110416
  2. NICORANDIS [Concomitant]
     Dosage: 5 MG, 3X/DAY
     Route: 048
     Dates: end: 20110420
  3. FUROSEMIDE [Concomitant]
     Dosage: 40 MG, 1X/DAY
     Route: 048
     Dates: end: 20110416
  4. MUCOSTA [Concomitant]
     Dosage: 100 MG, 3X/DAY
     Route: 048
     Dates: end: 20110416
  5. RIZE [Concomitant]
     Dosage: 5 MG, 2X/DAY
     Route: 048
     Dates: end: 20110416
  6. NERIPROCT [Concomitant]
     Indication: HAEMORRHOIDS
     Dosage: 2 G, 1X/DAY
     Route: 062
  7. PARIET [Concomitant]
     Dosage: 20 MG, 1X/DAY
     Route: 048
     Dates: end: 20110416
  8. CELECOXIB [Concomitant]
     Dosage: 200 MG, 2X/DAY
     Route: 048
     Dates: end: 20110416
  9. ALOSENN [Concomitant]
     Dosage: 1 G, 1X/DAY
     Route: 048
     Dates: end: 20110416
  10. MAGMITT [Concomitant]
     Dosage: 330 MG, 1X/DAY
     Route: 048
     Dates: end: 20110416
  11. PROGRAF [Concomitant]
     Dosage: 0.5 MG, 3X/DAY
     Route: 048
     Dates: end: 20110420
  12. TOYOFAROL [Concomitant]
     Dosage: 0.25 UG, 2X/DAY
     Route: 048
     Dates: end: 20110416
  13. ARGAMATE [Concomitant]
     Dosage: 25 G, 3X/DAY
     Route: 048
     Dates: end: 20110416
  14. PREDNISOLONE [Concomitant]
     Dosage: 2 MG, 2X/DAY
     Route: 048
     Dates: end: 20110420

REACTIONS (7)
  - SEPSIS [None]
  - HYPERGLYCAEMIA [None]
  - RENAL FAILURE [None]
  - AGRANULOCYTOSIS [None]
  - DISSEMINATED INTRAVASCULAR COAGULATION [None]
  - STOMATITIS [None]
  - SKIN ULCER [None]
